FAERS Safety Report 8407506 (Version 2)
Quarter: 2013Q2

REPORT INFORMATION
  Report Type: Spontaneous
  Country: US (occurrence: None)
  Receive Date: 20111227
  Receipt Date: 20120703
  Transmission Date: 20140414
  Serious: Yes (Other)
  Sender: FDA-Public Use
  Company Number: PHEH2011US06731

PATIENT
  Age: 52 Year
  Sex: Female
  Weight: 70.3 kg

DRUGS (7)
  1. GILENYA [Suspect]
     Indication: MULTIPLE SCLEROSIS
     Dosage: 0.5 MG, QD, ORAL
     Route: 048
     Dates: start: 20111004, end: 20120114
  2. PROVIGIL (MODAFINIL) [Concomitant]
  3. LEXAPRO (ESCITALOPRAM OXALATE) [Concomitant]
  4. BONIVA (IBANDRONATE SODIUM) [Concomitant]
  5. FISH OIL [Concomitant]
  6. CALCIUM WITH VITAMIN D (CALCIUM PHOSPHATE, CALCIUM SODIUM LACTATE, ERGOCALCIFEROL) [Concomitant]
  7. ESTRACE (ESTRADIOL) [Concomitant]

REACTIONS (4)
  - INSOMNIA [None]
  - NAUSEA [None]
  - DIZZINESS [None]
  - VISION BLURRED [None]
